FAERS Safety Report 5323638-6 (Version None)
Quarter: 2007Q2

REPORT INFORMATION
  Report Type: 
  Country: None (occurrence: None)
  Receive Date: 20070514
  Receipt Date: 20070509
  Transmission Date: 20071010
  Serious: Yes (Life-Threatening)
  Sender: FDA-Public Use
  Company Number: JP-BRISTOL-MYERS SQUIBB COMPANY-13731831

PATIENT
  Age: 77 Year
  Sex: Female

DRUGS (9)
  1. MAXIPIME [Suspect]
     Indication: CATHETER RELATED INFECTION
     Route: 041
     Dates: start: 20070314, end: 20070322
  2. SIGMART [Concomitant]
     Route: 048
     Dates: start: 20070121, end: 20070316
  3. HUSTAZOL [Concomitant]
     Route: 048
     Dates: start: 20070121, end: 20070316
  4. GRAMALIL [Concomitant]
     Route: 048
     Dates: start: 20070121, end: 20070316
  5. TAKEPRON [Concomitant]
     Route: 048
     Dates: start: 20070121, end: 20070316
  6. ASPIRIN [Concomitant]
     Route: 048
     Dates: start: 20070121, end: 20070316
  7. HIRNAMIN [Concomitant]
     Route: 048
     Dates: start: 20070301, end: 20070316
  8. FRANDOL TAPE S [Concomitant]
     Route: 062
     Dates: start: 20070121, end: 20070316
  9. PROCYLIN [Concomitant]
     Route: 048
     Dates: start: 20070121, end: 20070316

REACTIONS (2)
  - CONVULSION [None]
  - VENTRICULAR TACHYCARDIA [None]
